FAERS Safety Report 25806474 (Version 5)
Quarter: 2025Q4

REPORT INFORMATION
  Report Type: Report from Study
  Country: EU (occurrence: EU)
  Receive Date: 20250916
  Receipt Date: 20251209
  Transmission Date: 20260117
  Serious: Yes (Other)
  Sender: ABBVIE
  Company Number: EU-ABBVIE-6348492

PATIENT
  Age: 76 Year
  Sex: Male

DRUGS (5)
  1. FOSCARBIDOPA\FOSLEVODOPA [Suspect]
     Active Substance: FOSCARBIDOPA\FOSLEVODOPA
     Indication: Parkinson^s disease
     Dosage: DOSAGE: CRN: 0.22 ML/H, CR: 0.29 ML/H, CRH: 0.32 ML/H, ED 0.15 ML SAMPLE ?(CURFEW TIME 1:00 H)
     Route: 058
     Dates: start: 20250624, end: 20250625
  2. FOSCARBIDOPA\FOSLEVODOPA [Suspect]
     Active Substance: FOSCARBIDOPA\FOSLEVODOPA
     Dosage: DOSAGE: CRN: 0.22 ML/H, CR: 0.31 ML/H, CRH: 0.33 ML/H, ED: 0.15 ML (BLOCKING TIME: 1 H)?LAST ADMI...
     Route: 058
     Dates: start: 20250625
  3. FOSCARBIDOPA\FOSLEVODOPA [Suspect]
     Active Substance: FOSCARBIDOPA\FOSLEVODOPA
     Dosage: DOSAGE: CRN: 0.22 ML/H, CR: 0.32 ML/H, CRH: 0.34 ML/H, ED: 0.15 ML (BLOCKING PERIOD: 1 H)
     Route: 058
     Dates: start: 2025, end: 2025
  4. FOSCARBIDOPA\FOSLEVODOPA [Suspect]
     Active Substance: FOSCARBIDOPA\FOSLEVODOPA
     Dosage: DOSAGE: CRN: 0.21 ML/H, CR: 0.23 ML/H, CRH: 0.25 ML/H, ED: 0.15 ML,
     Route: 058
     Dates: start: 2025, end: 2025
  5. FOSCARBIDOPA\FOSLEVODOPA [Suspect]
     Active Substance: FOSCARBIDOPA\FOSLEVODOPA
     Dosage: CRN: 0.21 ML/H, CR: 0.24 ML/H, CRH: 0.26 ML/H, ED: 0.15 ML
     Route: 058
     Dates: start: 2025

REACTIONS (17)
  - Cataract [Unknown]
  - Hallucination [Recovered/Resolved]
  - Muscle spasms [Recovering/Resolving]
  - Infusion site induration [Recovered/Resolved]
  - On and off phenomenon [Recovered/Resolved]
  - Dyskinesia [Recovered/Resolved]
  - Tremor [Recovering/Resolving]
  - Fatigue [Recovered/Resolved]
  - Hallucination [Recovered/Resolved]
  - Hypokinesia [Recovered/Resolved]
  - Somnolence [Recovered/Resolved]
  - Infusion site erythema [Recovered/Resolved]
  - On and off phenomenon [Recovering/Resolving]
  - Infusion site induration [Unknown]
  - Infusion site erythema [Unknown]
  - Hypokinesia [Recovering/Resolving]
  - Somnolence [Recovered/Resolved]

NARRATIVE: CASE EVENT DATE: 20250101
